FAERS Safety Report 8434797-0 (Version None)
Quarter: 2012Q2

REPORT INFORMATION
  Report Type: 
  Country: None (occurrence: None)
  Receive Date: 20120323
  Receipt Date: 20110621
  Transmission Date: 20120825
  Serious: Yes (Other)
  Sender: FDA-Public Use
  Company Number: 163-21880-11060225

PATIENT
  Age: 75 Year
  Sex: Male
  Weight: 123.3 kg

DRUGS (12)
  1. ALPHA LIPOIC ACID (THIOCTIC ACID) [Concomitant]
  2. FLONASE [Concomitant]
  3. BUFFERIN [Concomitant]
  4. FOLBIC (HEPAGRISEVIT FORTE-N TABLET) [Concomitant]
  5. HYDROCHLOROTHIAZIDE [Concomitant]
  6. REVLIMID [Suspect]
     Indication: MULTIPLE MYELOMA
     Dosage: 25 MG, ONCE DAILY X21 DAYS; THEN 7D OFF, PO
     Route: 048
     Dates: start: 20110201
  7. ALLOPURINOL [Concomitant]
  8. FISH OIL (FISH OIL) [Concomitant]
  9. VITAMIN D (ERGOCALCIFEROL) (TABLETS) [Concomitant]
  10. MULTIVITAMIN [Concomitant]
  11. PEPCID [Concomitant]
  12. FOLIC ACID [Concomitant]

REACTIONS (1)
  - PLATELET COUNT DECREASED [None]
